FAERS Safety Report 24965731 (Version 1)
Quarter: 2025Q1

REPORT INFORMATION
  Report Type: Spontaneous
  Country: US (occurrence: None)
  Receive Date: 20250213
  Receipt Date: 20250213
  Transmission Date: 20250409
  Serious: Yes (Disabling)
  Sender: FDA-CTU
  Company Number: None

PATIENT
  Age: 37 Year
  Sex: Male
  Weight: 63 kg

DRUGS (1)
  1. ENTYVIO [Suspect]
     Active Substance: VEDOLIZUMAB
     Indication: Crohn^s disease
     Dates: start: 20210201, end: 20220901

REACTIONS (4)
  - Headache [None]
  - Fatigue [None]
  - Loss of personal independence in daily activities [None]
  - Therapy cessation [None]

NARRATIVE: CASE EVENT DATE: 20220801
